FAERS Safety Report 9822816 (Version 1)
Quarter: 2014Q1

REPORT INFORMATION
  Report Type: Report from Study
  Country: BR (occurrence: BR)
  Receive Date: 20140116
  Receipt Date: 20140116
  Transmission Date: 20141002
  Serious: Yes (Other)
  Sender: FDA-Public Use
  Company Number: PHHY2014BR003354

PATIENT
  Age: 68 Year
  Sex: Female
  Weight: 60 kg

DRUGS (15)
  1. CANDESARTAN CILEXETIL [Suspect]
     Indication: CARDIAC DISORDER
     Dosage: 8 MG, QD
     Route: 048
  2. ATACAND [Concomitant]
  3. CITALOR [Concomitant]
  4. ISOCORD [Concomitant]
  5. AAS [Concomitant]
  6. ATACAND PROTECT [Concomitant]
  7. LIPITOR [Concomitant]
  8. PLAGREL [Concomitant]
     Dosage: 75 MG, QD
  9. OMEPRAZOLE [Concomitant]
     Indication: OESOPHAGEAL STENOSIS
  10. BUSCOPAN [Concomitant]
     Indication: NEPHROLITHIASIS
  11. WARFARIN [Concomitant]
     Indication: PULMONARY EMBOLISM
     Dosage: UNK UKN, UNK
     Dates: start: 20111111, end: 201312
  12. GASTROL [Concomitant]
     Indication: DYSPEPSIA
  13. ALUMINUM HYDROXIDE [Concomitant]
  14. VANCEL [Concomitant]
     Indication: MALAISE
  15. BENEFLORA S [Concomitant]
     Indication: DYSBACTERIOSIS

REACTIONS (8)
  - Delirium [Unknown]
  - Cerebrovascular accident [Unknown]
  - Myocardial infarction [Unknown]
  - Blood pressure decreased [Unknown]
  - Memory impairment [Unknown]
  - Hallucination [Unknown]
  - Malaise [Unknown]
  - Feeling abnormal [Unknown]
